FAERS Safety Report 5905003-3 (Version None)
Quarter: 2008Q4

REPORT INFORMATION
  Report Type: 
  Country: None (occurrence: None)
  Receive Date: 20081001
  Receipt Date: 20080919
  Transmission Date: 20090506
  Serious: Yes (Hospitalization)
  Sender: FDA-Public Use
  Company Number: GB-ROCHE-587578

PATIENT
  Sex: Female
  Weight: 65 kg

DRUGS (11)
  1. CAPECITABINE [Suspect]
     Indication: COLON CANCER
     Dosage: DOSE: 1500 TWICE DAILY FOR 14 DAYS, 25% DOSE ORIGINALLY REDUCED ,INCREASED AS WEIGHT IMPROVE.
     Route: 048
     Dates: start: 20080318, end: 20080825
  2. METOCLOPRAMIDE [Concomitant]
     Route: 048
     Dates: start: 20080318, end: 20080825
  3. LOPERAMIDE HCL [Concomitant]
     Indication: DIARRHOEA
     Route: 048
  4. LANSOPRAZOLE [Concomitant]
     Indication: DYSPEPSIA
     Route: 048
     Dates: end: 20080924
  5. SALBUTAMOL [Concomitant]
     Indication: ASTHMA
     Route: 055
  6. SYMBICORT [Concomitant]
     Indication: ASTHMA
     Dosage: DOSE IS 200/6.
     Route: 055
  7. TRIMETHOPRIM [Concomitant]
     Indication: URINARY TRACT INFECTION
     Route: 048
     Dates: start: 20080913, end: 20080919
  8. METRONIDAZOLE [Concomitant]
     Dosage: INDICATION: C-OH POSITIVE IN STOOL SPECIMEN
     Route: 048
     Dates: start: 20080919
  9. NYSTATIN [Concomitant]
     Route: 048
     Dates: start: 20080913, end: 20080919
  10. ZOPICLONE [Concomitant]
     Route: 048
     Dates: start: 20080913
  11. CODEINE PHOSPHATE [Concomitant]
     Indication: NECK PAIN
     Route: 048
     Dates: start: 20080919

REACTIONS (2)
  - DEPRESSION [None]
  - SUICIDAL IDEATION [None]
